FAERS Safety Report 5137085-3 (Version None)
Quarter: 2006Q4

REPORT INFORMATION
  Report Type: 
  Country: None (occurrence: None)
  Receive Date: 20061030
  Receipt Date: 20061019
  Transmission Date: 20070319
  Serious: Yes (Hospitalization)
  Sender: FDA-Public Use
  Company Number: FR-AVENTIS-200613713FR

PATIENT
  Age: 65 Year
  Sex: Male

DRUGS (5)
  1. LASILIX                            /00032601/ [Suspect]
     Indication: DRUG USE FOR UNKNOWN INDICATION
     Route: 048
  2. DIAMICRON [Suspect]
     Indication: DRUG USE FOR UNKNOWN INDICATION
     Route: 048
     Dates: end: 20060822
  3. PREVISCAN                          /00789001/ [Suspect]
     Indication: DRUG USE FOR UNKNOWN INDICATION
     Route: 048
     Dates: end: 20060801
  4. ALLOPURINOL [Suspect]
     Indication: DRUG USE FOR UNKNOWN INDICATION
     Route: 048
  5. ACUITEL                            /00810601/ [Suspect]
     Indication: DRUG USE FOR UNKNOWN INDICATION
     Route: 048
     Dates: end: 20060802

REACTIONS (14)
  - ACQUIRED HAEMOPHILIA [None]
  - ANAEMIA [None]
  - ATRIAL THROMBOSIS [None]
  - CHOLESTASIS [None]
  - COAGULATION FACTOR VIII LEVEL DECREASED [None]
  - COAGULOPATHY [None]
  - FACTOR VIII INHIBITION [None]
  - HAEMATOMA [None]
  - HEPATIC CIRRHOSIS [None]
  - JAUNDICE [None]
  - NORMOCHROMIC NORMOCYTIC ANAEMIA [None]
  - PLEURAL EFFUSION [None]
  - SCIATICA [None]
  - SPLENOMEGALY [None]
